FAERS Safety Report 7756410-8 (Version None)
Quarter: 2011Q3

REPORT INFORMATION
  Report Type: 
  Country: None (occurrence: None)
  Receive Date: 20110916
  Receipt Date: 20110831
  Transmission Date: 20111222
  Serious: Yes (Death)
  Sender: FDA-Public Use
  Company Number: AU-ROCHE-802646

PATIENT
  Sex: Male

DRUGS (2)
  1. ISOTRETINOIN [Suspect]
     Route: 065
     Dates: start: 20090101
  2. ISOTRETINOIN [Suspect]
     Indication: ACNE
     Route: 065
     Dates: start: 20080101, end: 20090101

REACTIONS (1)
  - COMPLETED SUICIDE [None]
